FAERS Safety Report 9797051 (Version 1)
Quarter: 2014Q1

REPORT INFORMATION
  Report Type: Report from Study
  Country: AR (occurrence: AR)
  Receive Date: 20140105
  Receipt Date: 20140105
  Transmission Date: 20141002
  Serious: Yes (Congenital Anomaly)
  Sender: FDA-Public Use
  Company Number: AR-MYLANLABS-2013S1028963

PATIENT
  Sex: Female
  Weight: .9 kg

DRUGS (6)
  1. METHOTREXATE [Suspect]
     Indication: RHEUMATOID ARTHRITIS
     Dosage: 7.5MG WEEKLY
     Route: 064
  2. FLUCONAZOLE [Concomitant]
     Dosage: 150MG WEEKLY
     Route: 064
  3. ROFECOXIB [Concomitant]
     Dosage: 25 MG/DAY
     Route: 064
  4. MEPREDNISONE [Concomitant]
     Dosage: 8 MG/DAY
     Route: 064
  5. RANITIDINE [Concomitant]
     Dosage: 300MG DAILY
     Route: 064
  6. ISONIAZID [Concomitant]
     Dosage: 300MG DAILY
     Route: 064

REACTIONS (14)
  - Microcephaly [Unknown]
  - Craniosynostosis [Unknown]
  - Delayed fontanelle closure [Unknown]
  - Chloasma [Unknown]
  - Nose deformity [Unknown]
  - Exophthalmos [Unknown]
  - Low set ears [Unknown]
  - Dysplasia [Unknown]
  - High arched palate [Unknown]
  - Neck deformity [Unknown]
  - Finger deformity [Unknown]
  - Talipes [Unknown]
  - Congenital skin dimples [Unknown]
  - Foetal exposure during pregnancy [Unknown]
